FAERS Safety Report 22517614 (Version 3)
Quarter: 2023Q2

REPORT INFORMATION
  Report Type: Spontaneous
  Country: IT (occurrence: IT)
  Receive Date: 20230604
  Receipt Date: 20230620
  Transmission Date: 20230722
  Serious: Yes (Hospitalization, Other)
  Sender: FDA-Public Use
  Company Number: IT-OTSUKA-2023_013306

PATIENT
  Age: 16 Year
  Sex: Female

DRUGS (14)
  1. ARIPIPRAZOLE [Interacting]
     Active Substance: ARIPIPRAZOLE
     Indication: Autism spectrum disorder
     Dosage: 15 MILLIGRAM, ONCE A DAY
     Route: 065
  2. ARIPIPRAZOLE [Interacting]
     Active Substance: ARIPIPRAZOLE
     Indication: Major depression
  3. DULOXETINE [Interacting]
     Active Substance: DULOXETINE
     Indication: Sleep disorder
     Dosage: 60 MILLIGRAM, ONCE A DAY
     Route: 065
  4. DULOXETINE [Interacting]
     Active Substance: DULOXETINE
     Indication: Autism spectrum disorder
     Dosage: 120 MILLIGRAM, ONCE A DAY
     Route: 065
  5. DULOXETINE [Interacting]
     Active Substance: DULOXETINE
     Indication: Major depression
  6. MIRTAZAPINE [Interacting]
     Active Substance: MIRTAZAPINE
     Indication: Sleep disorder
     Dosage: 30 MILLIGRAM, ONCE A DAY
     Route: 065
  7. MIRTAZAPINE [Interacting]
     Active Substance: MIRTAZAPINE
     Indication: Autism spectrum disorder
     Dosage: 15 MILLIGRAM, ONCE A DAY
     Route: 065
  8. MIRTAZAPINE [Interacting]
     Active Substance: MIRTAZAPINE
     Indication: Major depression
  9. LITHIUM [Interacting]
     Active Substance: LITHIUM
     Indication: Autism spectrum disorder
     Dosage: 12 MILLIMOLE, ONCE A DAY
     Route: 065
  10. LITHIUM [Interacting]
     Active Substance: LITHIUM
     Indication: Major depression
  11. FLUOXETINE [Concomitant]
     Active Substance: FLUOXETINE HYDROCHLORIDE
     Indication: Autism spectrum disorder
     Dosage: 40 MILLIGRAM, ONCE A DAY
     Route: 065
  12. FLUOXETINE [Concomitant]
     Active Substance: FLUOXETINE HYDROCHLORIDE
     Indication: Sleep disorder
     Dosage: 20 MILLIGRAM, ONCE A DAY
     Route: 065
  13. FLUOXETINE [Concomitant]
     Active Substance: FLUOXETINE HYDROCHLORIDE
     Indication: Major depression
  14. SERTRALINE [Concomitant]
     Active Substance: SERTRALINE HYDROCHLORIDE
     Indication: Major depression
     Dosage: 200 MILLIGRAM, DAILY
     Route: 065

REACTIONS (8)
  - Vision blurred [Unknown]
  - Electrocardiogram repolarisation abnormality [Unknown]
  - Depression [Unknown]
  - Drug interaction [Unknown]
  - Treatment failure [Unknown]
  - Drug ineffective for unapproved indication [Unknown]
  - Product use issue [Unknown]
  - Therapeutic product effect incomplete [Unknown]
